FAERS Safety Report 21542330 (Version 1)
Quarter: 2022Q4

REPORT INFORMATION
  Report Type: Spontaneous
  Country: US (occurrence: US)
  Receive Date: 20221102
  Receipt Date: 20221102
  Transmission Date: 20230113
  Serious: Yes (Other)
  Sender: FDA-Public Use
  Company Number: US-002147023-NVSC2022US242818

PATIENT
  Age: 74 Year
  Sex: Male

DRUGS (1)
  1. METHOTREXATE [Suspect]
     Active Substance: METHOTREXATE
     Indication: Product used for unknown indication
     Dosage: 10 MG, TID (FOR 2 WEEKS INSTEAD OF 3 TIMES PER WEEK)
     Route: 065

REACTIONS (7)
  - Hallucination [Recovered/Resolved]
  - Stomatitis [Recovered/Resolved]
  - Oropharyngeal oedema [Recovered/Resolved]
  - Pyrexia [Recovered/Resolved]
  - Confusional state [Recovered/Resolved]
  - Drug level above therapeutic [Unknown]
  - Inappropriate schedule of product administration [Unknown]
